FAERS Safety Report 11946177 (Version 1)
Quarter: 2016Q1

REPORT INFORMATION
  Report Type: Report from Study
  Country: US (occurrence: US)
  Receive Date: 20160125
  Receipt Date: 20160125
  Transmission Date: 20160526
  Serious: No
  Sender: FDA-Public Use
  Company Number: US-ABBVIE-11P-163-0866686-00

PATIENT
  Age: 65 Year
  Sex: Female
  Weight: 59.47 kg

DRUGS (1)
  1. HUMIRA [Suspect]
     Active Substance: ADALIMUMAB
     Indication: ANKYLOSING SPONDYLITIS
     Route: 058
     Dates: start: 20111013

REACTIONS (9)
  - Dysphonia [Recovered/Resolved]
  - Pain [Recovered/Resolved]
  - Rhinitis [Not Recovered/Not Resolved]
  - Rhinorrhoea [Recovered/Resolved]
  - Allergic sinusitis [Recovered/Resolved]
  - Dysphonia [Not Recovered/Not Resolved]
  - Allergic sinusitis [Not Recovered/Not Resolved]
  - Pain [Not Recovered/Not Resolved]
  - Rhinorrhoea [Not Recovered/Not Resolved]

NARRATIVE: CASE EVENT DATE: 20111018
